FAERS Safety Report 5511116-0 (Version None)
Quarter: 2007Q4

REPORT INFORMATION
  Report Type: 
  Country: None (occurrence: None)
  Receive Date: 20071109
  Receipt Date: 20071101
  Transmission Date: 20080405
  Serious: Yes (Disabling)
  Sender: FDA-Public Use
  Company Number: CY-AVENTIS-200720138GDDC

PATIENT
  Age: 34 Year
  Sex: Female

DRUGS (2)
  1. KETEK [Suspect]
     Dosage: DOSE: UNK
     Route: 048
     Dates: start: 20071027, end: 20071028
  2. DICLOFENAC SODIUM [Concomitant]
     Dosage: DOSE: UNK

REACTIONS (2)
  - BLINDNESS TRANSIENT [None]
  - VISION BLURRED [None]
